FAERS Safety Report 18403837 (Version 2)
Quarter: 2020Q4

REPORT INFORMATION
  Report Type: Report from Study
  Country: US (occurrence: US)
  Receive Date: 20201020
  Receipt Date: 20201214
  Transmission Date: 20210114
  Serious: Yes (Other)
  Sender: FDA-Public Use
  Company Number: US-SHIRE-US202034137

PATIENT
  Sex: Male

DRUGS (2)
  1. TPN [Concomitant]
     Active Substance: AMINO ACIDS\DEXTROSE\ELECTROLYTES NOS\SOYBEAN OIL
     Indication: PRODUCT USED FOR UNKNOWN INDICATION
  2. TEDUGLUTIDE [Suspect]
     Active Substance: TEDUGLUTIDE
     Indication: SHORT-BOWEL SYNDROME
     Dosage: 0.17 MILLIGRAM, QD
     Route: 058
     Dates: start: 201509

REACTIONS (5)
  - Weight increased [Unknown]
  - Road traffic accident [Unknown]
  - Crohn^s disease [Unknown]
  - Dialysis [Unknown]
  - Renal disorder [Unknown]
